FAERS Safety Report 4644530-6 (Version None)
Quarter: 2005Q2

REPORT INFORMATION
  Report Type: 
  Country: None (occurrence: None)
  Receive Date: 20050425
  Receipt Date: 20050425
  Transmission Date: 20051028
  Serious: Yes (Hospitalization)
  Sender: FDA-Public Use
  Company Number: None

PATIENT
  Age: 42 Year
  Sex: Female
  Weight: 56.246 kg

DRUGS (3)
  1. LITHIUM CARBONATE [Suspect]
     Indication: BIPOLAR I DISORDER
     Dosage: 300 MG QAM + 600MG HS   { 1 MONTH
     Dates: start: 20050405
  2. TEGRETOL [Suspect]
     Indication: BIPOLAR I DISORDER
     Dosage: 200 MG PO BID    { 1 MONTH
     Route: 048
     Dates: start: 20050329
  3. ABILIFY [Concomitant]

REACTIONS (2)
  - ERYTHEMA [None]
  - SWELLING FACE [None]
